FAERS Safety Report 5022255-5 (Version None)
Quarter: 2006Q2

REPORT INFORMATION
  Report Type: 
  Country: None (occurrence: None)
  Receive Date: 20060609
  Receipt Date: 20060603
  Transmission Date: 20061013
  Serious: Yes (Other)
  Sender: FDA-Public Use
  Company Number: JO-MERCK-0606USA00778

PATIENT
  Age: 20 Month
  Sex: Male
  Weight: 12 kg

DRUGS (3)
  1. SINGULAIR [Suspect]
     Indication: ASTHMA
     Route: 048
     Dates: start: 20060128, end: 20060301
  2. [THERAPY UNSPECIFIED] [Concomitant]
     Route: 048
  3. [THERAPY UNSPECIFIED] [Concomitant]
     Route: 048

REACTIONS (2)
  - EPILEPSY [None]
  - SLEEP TERROR [None]
